FAERS Safety Report 7762536-5 (Version None)
Quarter: 2011Q3

REPORT INFORMATION
  Report Type: 
  Country: None (occurrence: None)
  Receive Date: 20110920
  Receipt Date: 20110912
  Transmission Date: 20111222
  Serious: Yes (Hospitalization)
  Sender: FDA-Public Use
  Company Number: BR-ASTRAZENECA-2011SE55456

PATIENT
  Age: 79 Year
  Sex: Female
  Weight: 54 kg

DRUGS (6)
  1. ATACAND [Suspect]
     Route: 048
  2. ATACAND [Suspect]
     Indication: HYPERTENSION
     Route: 048
     Dates: start: 20100101, end: 20110901
  3. PANTOPRAZOLE [Concomitant]
     Route: 048
     Dates: start: 20100101
  4. ATACAND HCT [Suspect]
     Indication: HYPERTENSION
     Dosage: 16/12.5 MG ONCE DAILY
     Route: 048
     Dates: end: 20100101
  5. ATENOLOL [Concomitant]
     Route: 048
     Dates: start: 19980101
  6. OMEPRAZOLE [Suspect]
     Route: 048
     Dates: end: 20100101

REACTIONS (5)
  - SWELLING [None]
  - GASTROINTESTINAL CARCINOMA [None]
  - DRUG INEFFECTIVE [None]
  - SKIN DISCOLOURATION [None]
  - BLOOD PRESSURE INADEQUATELY CONTROLLED [None]
